FAERS Safety Report 5389087-X (Version None)
Quarter: 2007Q3

REPORT INFORMATION
  Report Type: 
  Country: None (occurrence: None)
  Receive Date: 20070717
  Receipt Date: 20070713
  Transmission Date: 20080115
  Serious: Yes (Other)
  Sender: FDA-Public Use
  Company Number: IT-BRISTOL-MYERS SQUIBB COMPANY-13845698

PATIENT
  Age: 43 Year
  Sex: Male

DRUGS (3)
  1. ABATACEPT [Suspect]
     Indication: CROHN'S DISEASE
     Route: 042
     Dates: start: 20070417
  2. PLACEBO [Suspect]
  3. AZATHIOPRINE [Concomitant]
     Dates: start: 20060217

REACTIONS (1)
  - INTESTINAL OBSTRUCTION [None]
